FAERS Safety Report 23538110 (Version 2)
Quarter: 2024Q4

REPORT INFORMATION
  Report Type: Spontaneous
  Country: ES (occurrence: ES)
  Receive Date: 20240219
  Receipt Date: 20241213
  Transmission Date: 20250115
  Serious: Yes (Hospitalization)
  Sender: TEVA
  Company Number: None

PATIENT
  Age: 35 Year
  Sex: Female

DRUGS (5)
  1. PAROXETINE [Suspect]
     Active Substance: PAROXETINE
     Indication: Anxiety
     Route: 048
     Dates: start: 20220324, end: 20231108
  2. LEVOTHYROXINE SODIUM [Concomitant]
     Active Substance: LEVOTHYROXINE SODIUM
     Indication: Product used for unknown indication
     Dosage: 100.0 MCG A-DE, 100 MICROGRAMS, 100 TABLETS
     Route: 048
     Dates: start: 20220908
  3. CYANOCOBALAMIN\FOLIC ACID [Concomitant]
     Active Substance: CYANOCOBALAMIN\FOLIC ACID
     Indication: Hypovitaminosis
     Dosage: 1.0 COMP A-DE,400/2 MICROGRAMS 28 TABLETS
     Route: 048
     Dates: start: 20220908
  4. DIAZEPAM [Concomitant]
     Active Substance: DIAZEPAM
     Indication: Conversion disorder
     Dosage: 10.0 MG CE, 30 TABLETS
     Route: 048
     Dates: start: 20220510
  5. ROSUVASTATINA STADA [Concomitant]
     Indication: Hypothyroidism
     Dosage: 10.0 MG CE, EFG, 28 TABLETS
     Route: 048
     Dates: start: 20211221

REACTIONS (3)
  - Serotonin syndrome [Recovered/Resolved]
  - Accidental overdose [Recovered/Resolved]
  - Medication error [Recovered/Resolved]

NARRATIVE: CASE EVENT DATE: 20231108
